FAERS Safety Report 18431053 (Version 2)
Quarter: 2020Q4

REPORT INFORMATION
  Report Type: Spontaneous
  Country: US (occurrence: US)
  Receive Date: 20201027
  Receipt Date: 20201218
  Transmission Date: 20210114
  Serious: Yes (Other)
  Sender: FDA-Public Use
  Company Number: US-BAYER-2020-223331

PATIENT
  Age: 60 Year
  Sex: Male

DRUGS (1)
  1. ASPIRIN (PAIN AND FEVER) [Suspect]
     Active Substance: ASPIRIN
     Dosage: 500 MG
     Route: 048
     Dates: end: 20201014

REACTIONS (1)
  - Cardiac flutter [Unknown]

NARRATIVE: CASE EVENT DATE: 202012
